FAERS Safety Report 20080419 (Version 1)
Quarter: 2021Q4

REPORT INFORMATION
  Report Type: Spontaneous
  Country: US (occurrence: None)
  Receive Date: 20211116
  Receipt Date: 20211116
  Transmission Date: 20220303
  Serious: No
  Sender: FDA-Public Use
  Company Number: None

PATIENT
  Age: 86 Year
  Sex: Female

DRUGS (1)
  1. ADEMPAS [Suspect]
     Active Substance: RIOCIGUAT
     Indication: Pulmonary hypertension
     Dosage: FREQUENCY : TWICE A DAY;?
     Route: 048
     Dates: start: 20210921, end: 20211116

REACTIONS (5)
  - Dysgeusia [None]
  - Urine output decreased [None]
  - Dyspepsia [None]
  - Weight increased [None]
  - Micturition urgency [None]

NARRATIVE: CASE EVENT DATE: 20211116
